FAERS Safety Report 9617416 (Version 1)
Quarter: 2013Q4

REPORT INFORMATION
  Report Type: Spontaneous
  Country: US (occurrence: None)
  Receive Date: 20131009
  Receipt Date: 20131009
  Transmission Date: 20140711
  Serious: Yes (Hospitalization, Other)
  Sender: FDA-Public Use
  Company Number: 2013-000673

PATIENT
  Age: 73 Year
  Sex: Female

DRUGS (14)
  1. ACTONEL [Suspect]
     Route: 048
  2. ALENDRONATE [Suspect]
     Dosage: 70 MG ONCE WEEKLY, ORAL
     Route: 048
     Dates: start: 20031219, end: 20100823
  3. PREDNISONE (PREDNISONE) [Concomitant]
  4. ASPIRIN (ACETYLSALICYLIC ACID) [Concomitant]
  5. FOSAMAX D [Suspect]
     Dosage: 70 MG ONCE WEEKLY, ORAL
     Route: 048
     Dates: start: 20061113, end: 20070402
  6. ATENOLOL (ATENOLOL) [Concomitant]
  7. AMLODIPINE (AMLODIPINE) [Concomitant]
  8. RAMIPRIL (RAMIPRIL) [Concomitant]
  9. LIPITOR (ATORVASTATIN CALCIUM) [Concomitant]
  10. LYRICA (PREGABALIN) [Concomitant]
  11. MELOXICAM (MELOXICAM) [Concomitant]
  12. NEXIUM [Concomitant]
  13. ALPHAGAN (BRIMONIDINE TARTRATE) [Concomitant]
  14. FOLBIC (CYANOCOBALAMIN, FOLIC ACID, PYRIDOXINE HYDROCHLORIDE) [Concomitant]

REACTIONS (13)
  - Pathological fracture [None]
  - Fracture displacement [None]
  - Femur fracture [None]
  - Pain in extremity [None]
  - Osteonecrosis of jaw [None]
  - Gingival pain [None]
  - Device issue [None]
  - Gingival ulceration [None]
  - Primary sequestrum [None]
  - Gingival swelling [None]
  - Oral cavity fistula [None]
  - Impaired healing [None]
  - Purulent discharge [None]
